FAERS Safety Report 19041380 (Version 7)
Quarter: 2021Q4

REPORT INFORMATION
  Report Type: Spontaneous
  Country: FR (occurrence: FR)
  Receive Date: 20210323
  Receipt Date: 20211203
  Transmission Date: 20220303
  Serious: Yes (Disabling, Other)
  Sender: FDA-Public Use
  Company Number: FR-ZENTIVA-2021-ZT-002730

PATIENT
  Age: 87 Year
  Sex: Male

DRUGS (5)
  1. VELCADE [Suspect]
     Active Substance: BORTEZOMIB
     Indication: Plasma cell myeloma
     Dosage: 1.3 MILLIGRAM/SQ. METER, QD
     Route: 065
  2. PREDNISONE [Concomitant]
     Active Substance: PREDNISONE
     Indication: Plasma cell myeloma
     Dosage: 1 MILLIGRAM/KILOGRAM, QD
     Route: 048
  3. IXAZOMIB [Concomitant]
     Active Substance: IXAZOMIB
     Indication: Plasma cell myeloma
     Dosage: 2.3 MILLIGRAM
     Route: 048
  4. MELPHALAN [Concomitant]
     Active Substance: MELPHALAN
     Indication: Plasma cell myeloma
     Dosage: 2 MILLIGRAM/KILOGRAM, QD
     Route: 048
  5. MELPHALAN [Concomitant]
     Active Substance: MELPHALAN
     Dosage: 0.2 MILLIGRAM/KILOGRAM
     Route: 048

REACTIONS (2)
  - Chalazion [Recovered/Resolved]
  - Blepharitis [Recovered/Resolved]
